FAERS Safety Report 16694879 (Version 3)
Quarter: 2021Q1

REPORT INFORMATION
  Report Type: Spontaneous
  Country: US (occurrence: US)
  Receive Date: 20190812
  Receipt Date: 20210225
  Transmission Date: 20210419
  Serious: Yes (Other)
  Sender: FDA-Public Use
  Company Number: US-BEH-2019105498

PATIENT
  Age: 14 Year
  Sex: Female

DRUGS (4)
  1. HAEGARDA [Suspect]
     Active Substance: HUMAN C1-ESTERASE INHIBITOR
     Indication: HEREDITARY ANGIOEDEMA
     Dosage: 6000 INTERNATIONAL UNIT, BIW (REPORTED AS EVERY 4 DAYS)
     Route: 058
     Dates: start: 20190220
  2. HAEGARDA [Suspect]
     Active Substance: HUMAN C1-ESTERASE INHIBITOR
     Indication: PROPHYLAXIS
     Dosage: 6900 INTERNATIONAL UNIT, BIW (REPORTED AS EVERY 4 DAYS)
     Route: 058
     Dates: start: 20190220
  3. HAEGARDA [Suspect]
     Active Substance: HUMAN C1-ESTERASE INHIBITOR
     Indication: PROPHYLAXIS
     Dosage: 6900 INTERNATIONAL UNIT, BIW (REPORTED AS EVERY 4 DAYS)
     Route: 058
     Dates: start: 20190220
  4. HAEGARDA [Suspect]
     Active Substance: HUMAN C1-ESTERASE INHIBITOR
     Indication: HEREDITARY ANGIOEDEMA
     Dosage: 900 INTERNATIONAL UNIT, BIW (REPORTED AS EVERY 4 DAYS)
     Route: 058
     Dates: start: 20190220

REACTIONS (5)
  - Product dose omission in error [Recovered/Resolved]
  - Hereditary angioedema [Recovered/Resolved]
  - Hereditary angioedema [Recovered/Resolved]
  - Hereditary angioedema [Recovered/Resolved]
  - Hereditary angioedema [Recovered/Resolved]

NARRATIVE: CASE EVENT DATE: 20190804
